FAERS Safety Report 18647367 (Version 1)
Quarter: 2020Q4

REPORT INFORMATION
  Report Type: Spontaneous
  Country: US (occurrence: US)
  Receive Date: 20201222
  Receipt Date: 20201222
  Transmission Date: 20210114
  Serious: No
  Sender: FDA-Public Use
  Company Number: US-APOTEX-2020AP023847

PATIENT
  Age: 67 Year

DRUGS (1)
  1. BUTORPHANOL [Suspect]
     Active Substance: BUTORPHANOL
     Indication: PRURITUS
     Dosage: UNK UNK, PRN, 10 MG/ML INHALER ONCE IN 4 HOURS
     Route: 045

REACTIONS (2)
  - Off label use [Unknown]
  - Somnolence [Unknown]
